FAERS Safety Report 9922578 (Version 1)
Quarter: 2014Q1

REPORT INFORMATION
  Report Type: Spontaneous
  Country: GB (occurrence: GB)
  Receive Date: 20140225
  Receipt Date: 20140225
  Transmission Date: 20141002
  Serious: Yes (Other)
  Sender: FDA-Public Use
  Company Number: PHFR2014GB001685

PATIENT
  Age: 31 Year
  Sex: Male
  Weight: 63.73 kg

DRUGS (5)
  1. TERBINAFINE [Suspect]
     Dosage: UNK UKN, UNK
     Dates: start: 20131120, end: 20140115
  2. BETAMETHASONE VALERATE [Concomitant]
     Dosage: UNK UKN, UNK
     Dates: start: 20131025
  3. E45 [Concomitant]
     Dosage: UNK UKN, UNK
     Dates: start: 20131203, end: 20131231
  4. MOMETASONE [Concomitant]
     Dosage: UNK UKN, UNK
     Dates: start: 20131025
  5. CETRABEN [Concomitant]
     Dosage: UNK UKN, UNK

REACTIONS (3)
  - Blister [Recovering/Resolving]
  - Rash pustular [Recovering/Resolving]
  - Rash macular [Recovering/Resolving]
